FAERS Safety Report 6909573 (Version 4)
Quarter: 2013Q2

REPORT INFORMATION
  Report Type: Spontaneous
  Country: JP (occurrence: JP)
  Receive Date: 20090213
  Receipt Date: 20130410
  Transmission Date: 20140414
  Serious: Yes (Hospitalization, Other)
  Sender: FDA-Public Use
  Company Number: JP-JNJFOC-20090201543

PATIENT
  Age: 10 Year
  Sex: Male
  Weight: 21.6 kg

DRUGS (20)
  1. REMICADE [Suspect]
     Indication: CROHN^S DISEASE
     Dosage: 2ND AND 3RD INFUSION ON UNKNOWN DATES
     Route: 042
  2. REMICADE [Suspect]
     Indication: CROHN^S DISEASE
     Route: 042
     Dates: start: 20081209
  3. REMICADE [Suspect]
     Indication: CROHN^S DISEASE
     Route: 042
     Dates: start: 20081015
  4. REMICADE [Suspect]
     Indication: CROHN^S DISEASE
     Route: 042
     Dates: start: 20080725
  5. REMICADE [Suspect]
     Indication: CROHN^S DISEASE
     Dosage: RECEIVED 3 INFUSIONS
     Route: 042
     Dates: start: 20080418
  6. PREDNISOLONE [Suspect]
     Indication: CONGENITAL ECTODERMAL DYSPLASIA
     Route: 048
  7. NEORAL [Suspect]
     Indication: CONGENITAL ECTODERMAL DYSPLASIA
     Route: 048
  8. METHOTREXATE [Concomitant]
     Indication: CONGENITAL ECTODERMAL DYSPLASIA
     Route: 048
  9. BAKTAR [Concomitant]
     Indication: CONGENITAL ECTODERMAL DYSPLASIA
     Route: 048
  10. ONEALFA [Concomitant]
     Indication: OSTEOPOROSIS PROPHYLAXIS
     Dosage: DOSAGE = 0.1 RG/DAY
     Route: 048
  11. POLAPREZINC [Concomitant]
     Route: 048
     Dates: start: 20070725
  12. GASTER [Concomitant]
     Indication: PROPHYLAXIS AGAINST GASTROINTESTINAL ULCER
     Route: 048
     Dates: start: 20071205
  13. PENTASA [Concomitant]
     Indication: CROHN^S DISEASE
     Route: 048
     Dates: start: 20071213
  14. DIFLUCAN [Concomitant]
     Indication: CONGENITAL ECTODERMAL DYSPLASIA
     Route: 048
     Dates: start: 20080805
  15. ENTERONON-R [Concomitant]
     Indication: CROHN^S DISEASE
     Route: 048
  16. LONGES [Concomitant]
     Indication: HYPERTENSION
     Route: 048
  17. NORVASC [Concomitant]
     Indication: HYPERTENSION
     Route: 048
  18. POSTERISAN [Concomitant]
     Indication: HAEMORRHOIDS
     Route: 048
  19. CYCLOSPORINE [Concomitant]
     Route: 065
  20. STEROIDS NOS [Concomitant]
     Route: 065

REACTIONS (2)
  - Pneumonia [Recovered/Resolved]
  - Blood culture positive [Unknown]
